FAERS Safety Report 4510888-1 (Version None)
Quarter: 2004Q4

REPORT INFORMATION
  Report Type: 
  Country: None (occurrence: None)
  Receive Date: 20041025
  Receipt Date: 20030929
  Transmission Date: 20050328
  Serious: Yes (Other)
  Sender: FDA-Public Use
  Company Number: NSADSS2003000295

PATIENT
  Age: 67 Year
  Sex: Female
  Weight: 68.9467 kg

DRUGS (9)
  1. REMICADE [Suspect]
     Indication: RHEUMATOID ARTHRITIS
     Dosage: SEE IMAGE
     Route: 041
     Dates: start: 20021016
  2. REMICADE [Suspect]
     Indication: RHEUMATOID ARTHRITIS
     Dosage: SEE IMAGE
     Route: 041
     Dates: start: 20021029
  3. REMICADE [Suspect]
     Indication: RHEUMATOID ARTHRITIS
     Dosage: SEE IMAGE
     Route: 041
     Dates: start: 20021126
  4. DILANTIN [Concomitant]
  5. PHENOBARB (PHENOBARBITAL SODIUM) [Concomitant]
  6. MEDROL [Concomitant]
  7. ATIVAN [Concomitant]
  8. EFFEXOR [Concomitant]
  9. EVISTA [Concomitant]

REACTIONS (2)
  - CONVULSION [None]
  - HYPOKINESIA [None]
